FAERS Safety Report 9412300 (Version 1)
Quarter: 2013Q3

REPORT INFORMATION
  Report Type: Spontaneous
  Country: US (occurrence: None)
  Receive Date: 20130719
  Receipt Date: 20130719
  Transmission Date: 20140515
  Serious: Yes (Other)
  Sender: FDA-Public Use
  Company Number: None

PATIENT
  Sex: Female

DRUGS (3)
  1. ASPIRIN [Suspect]
     Indication: CARDIAC OPERATION
     Dosage: 325
     Dates: start: 200707
  2. ASPIRIN [Suspect]
     Indication: POSTOPERATIVE CARE
     Dosage: 325
     Dates: start: 200707
  3. TYLENOL [Suspect]

REACTIONS (1)
  - Hepatomegaly [None]
